FAERS Safety Report 5211769-0 (Version None)
Quarter: 2007Q1

REPORT INFORMATION
  Report Type: 
  Country: None (occurrence: None)
  Receive Date: 20070118
  Receipt Date: 20070110
  Transmission Date: 20070707
  Serious: Yes (Other)
  Sender: FDA-Public Use
  Company Number: 2007UW00564

PATIENT
  Age: 63 Year
  Sex: Male
  Weight: 108.9 kg

DRUGS (13)
  1. NEXIUM [Suspect]
     Indication: GASTROOESOPHAGEAL REFLUX DISEASE
     Route: 048
  2. DETROL LA [Concomitant]
  3. AVODART [Concomitant]
  4. ATACAND [Concomitant]
  5. POTASSIUM ACETATE [Concomitant]
  6. LASIX [Concomitant]
  7. METHADONE HCL [Concomitant]
  8. CYMBALTA [Concomitant]
  9. UROXATRAL [Concomitant]
  10. ASPIRIN [Concomitant]
     Route: 048
  11. PLAVIX [Concomitant]
  12. INSULIN [Concomitant]
  13. XALATAN [Concomitant]

REACTIONS (2)
  - BLOOD CREATINE PHOSPHOKINASE INCREASED [None]
  - PNEUMONIA [None]
